FAERS Safety Report 5291465-4 (Version None)
Quarter: 2007Q2

REPORT INFORMATION
  Report Type: 
  Country: None (occurrence: None)
  Receive Date: 20070403
  Receipt Date: 20070321
  Transmission Date: 20071010
  Serious: Yes (Other)
  Sender: FDA-Public Use
  Company Number: 231618K07USA

PATIENT
  Age: 27 Year
  Sex: Female
  Weight: 90.7194 kg

DRUGS (5)
  1. REBIF [Suspect]
     Indication: MULTIPLE SCLEROSIS
     Dosage: 44 MCG, 3 IN 1 WEEKS, SUBCUTANEOUS
     Route: 058
     Dates: start: 20061130
  2. ZOLOFT [Concomitant]
  3. XANAX [Concomitant]
  4. NEURONTIN [Concomitant]
  5. METANX (VITAMIN B12 NOS W/VITAMIN B6) [Concomitant]

REACTIONS (3)
  - AUTOIMMUNE THYROIDITIS [None]
  - GOITRE [None]
  - HYPOTHYROIDISM [None]
